FAERS Safety Report 10708551 (Version 1)
Quarter: 2015Q1

REPORT INFORMATION
  Report Type: Spontaneous
  Country: NL (occurrence: NL)
  Receive Date: 20150113
  Receipt Date: 20150113
  Transmission Date: 20150721
  Serious: Yes (Death)
  Sender: FDA-Public Use
  Company Number: NL-ASTRAZENECA-2015SE03829

PATIENT
  Sex: Male

DRUGS (1)
  1. GOSERELIN [Suspect]
     Active Substance: GOSERELIN
     Route: 058

REACTIONS (1)
  - Death [Fatal]
